FAERS Safety Report 11313398 (Version 1)
Quarter: 2015Q3

REPORT INFORMATION
  Report Type: Spontaneous
  Country: US (occurrence: None)
  Receive Date: 20150724
  Receipt Date: 20150724
  Transmission Date: 20151125
  Serious: Yes (Other)
  Sender: FDA-Public Use
  Company Number: None

PATIENT
  Age: 24 Year
  Sex: Female
  Weight: 79.38 kg

DRUGS (3)
  1. VIVITROL [Suspect]
     Active Substance: NALTREXONE
     Indication: REVERSAL OF OPIATE ACTIVITY
     Dates: start: 20150227, end: 20150716
  2. BACTRUM [Concomitant]
  3. ANTIBIOTIC [Concomitant]
     Active Substance: UNSPECIFIED INGREDIENT

REACTIONS (3)
  - Pyrexia [None]
  - Injection site ulcer [None]
  - Injection site abscess [None]

NARRATIVE: CASE EVENT DATE: 20150616
